FAERS Safety Report 6015880-6 (Version None)
Quarter: 2008Q4

REPORT INFORMATION
  Report Type: 
  Country: None (occurrence: None)
  Receive Date: 20081222
  Receipt Date: 20081219
  Transmission Date: 20090506
  Serious: Yes (Hospitalization)
  Sender: FDA-Public Use
  Company Number: A0761194A

PATIENT
  Age: 50 Year
  Sex: Female
  Weight: 104.5 kg

DRUGS (4)
  1. AVANDIA [Suspect]
     Dosage: 4MG TWICE PER DAY
     Route: 048
     Dates: start: 20030101, end: 20061201
  2. AVANDAMET [Suspect]
     Route: 048
     Dates: start: 20060801, end: 20061201
  3. MEGESTROL ACETATE [Concomitant]
  4. ZOLPIDEM [Concomitant]

REACTIONS (1)
  - MYOCARDIAL INFARCTION [None]
